FAERS Safety Report 9672092 (Version 1)
Quarter: 2013Q4

REPORT INFORMATION
  Report Type: Spontaneous
  Country: BR (occurrence: BR)
  Receive Date: 20131106
  Receipt Date: 20131106
  Transmission Date: 20140711
  Serious: Yes (Other)
  Sender: FDA-Public Use
  Company Number: PHHY2013BR103867

PATIENT
  Age: 34 Year
  Sex: Female
  Weight: 65 kg

DRUGS (3)
  1. TEGRETOL [Suspect]
     Indication: BIPOLAR DISORDER
     Dosage: ONE TABLET OF 400MG AND ONE TABLET OF 200MG DAILY
  2. TEGRETOL [Suspect]
     Dosage: 10 TABLETS OF 400MG
     Dates: start: 20130916
  3. TEGRETOL [Suspect]
     Dosage: ONE TABLET OF 400MG AND ONE TABLET OF 200MG DAILY

REACTIONS (2)
  - Intentional drug misuse [Unknown]
  - Stress [Not Recovered/Not Resolved]
